FAERS Safety Report 6168191-2 (Version None)
Quarter: 2009Q2

REPORT INFORMATION
  Report Type: 
  Country: None (occurrence: None)
  Receive Date: 20090427
  Receipt Date: 20090420
  Transmission Date: 20091009
  Serious: Yes (Other)
  Sender: FDA-Public Use
  Company Number: PHEH2007US04665

PATIENT
  Sex: Female

DRUGS (12)
  1. ZOMETA [Suspect]
     Indication: OSTEOPOROSIS
     Dosage: UNK
  2. AREDIA [Suspect]
     Indication: OSTEOPOROSIS
     Dosage: UNK
     Route: 042
  3. COREG [Concomitant]
     Dosage: 3.125 MG, BID
  4. PERIDEX [Concomitant]
  5. CYTOXAN [Concomitant]
     Indication: SYSTEMIC LUPUS ERYTHEMATOSUS
  6. IMMUNE GLOBULIN INTRAVENOUS (HUMAN) [Concomitant]
     Indication: SYSTEMIC LUPUS ERYTHEMATOSUS
     Route: 042
  7. PREDNISONE [Concomitant]
  8. PLAQUENIL [Concomitant]
  9. PRILOSEC [Concomitant]
  10. AMBIEN [Concomitant]
  11. CALCIUM CITRATE [Concomitant]
  12. BELLERGAL [Concomitant]

REACTIONS (20)
  - BONE DISORDER [None]
  - BONE EROSION [None]
  - DENTAL CARIES [None]
  - DYSPHAGIA [None]
  - ENDODONTIC PROCEDURE [None]
  - EXOSTOSIS [None]
  - GENERALISED OEDEMA [None]
  - GINGIVAL INFECTION [None]
  - MOUTH ULCERATION [None]
  - OLIGURIA [None]
  - OSTEOMYELITIS [None]
  - OSTEONECROSIS [None]
  - PAIN [None]
  - PERIODONTITIS [None]
  - RENAL FAILURE [None]
  - SEPSIS [None]
  - SPINAL OSTEOARTHRITIS [None]
  - SURGERY [None]
  - SWELLING [None]
  - TOOTH EXTRACTION [None]
